FAERS Safety Report 8333477-X (Version None)
Quarter: 2012Q2

REPORT INFORMATION
  Report Type: 
  Country: None (occurrence: None)
  Receive Date: 20120503
  Receipt Date: 20120424
  Transmission Date: 20120825
  Serious: Yes (Hospitalization)
  Sender: FDA-Public Use
  Company Number: US-BAYER-2012-006023

PATIENT
  Age: 27 Year
  Sex: Female
  Weight: 108.84 kg

DRUGS (14)
  1. IMITREX [Concomitant]
     Dosage: UNK
     Dates: start: 20101201, end: 20110301
  2. REGLAN [Concomitant]
     Indication: DYSPEPSIA
     Dosage: UNK
     Route: 048
     Dates: end: 20110301
  3. GLUCOPHAGE [Concomitant]
  4. TORADOL [Concomitant]
     Dosage: 10MG TID PRN
     Route: 048
     Dates: start: 20110611
  5. ZOLOFT [Concomitant]
     Dosage: 10 MG, DAILY
     Route: 048
     Dates: start: 20110611
  6. PROTONIX [Concomitant]
     Indication: DYSPEPSIA
     Dosage: UNK
     Dates: start: 20110401, end: 20110501
  7. METFORMIN HCL [Concomitant]
     Indication: DIABETES MELLITUS
     Dosage: UNK
     Dates: start: 20110601
  8. REGLAN [Concomitant]
     Dosage: 10 MG, TID
     Route: 048
     Dates: start: 20110711
  9. DROSPIRENONE AND ETHINYL ESTRADIOL [Suspect]
     Indication: CONTRACEPTION
     Dosage: UNK
     Dates: start: 20110401, end: 20110601
  10. ZOLOFT [Concomitant]
     Dosage: UNK
     Route: 048
     Dates: start: 20110627
  11. PRILOSEC [Concomitant]
     Dosage: 40 MG, DAILY
     Route: 048
     Dates: start: 20110611
  12. ZOLOFT [Concomitant]
     Indication: ANXIETY
     Dosage: UNK
     Dates: start: 20110627
  13. IMITREX [Concomitant]
     Indication: MIGRAINE
     Dosage: UNK
     Route: 048
     Dates: start: 20101201, end: 20110301
  14. METFORMIN HCL [Concomitant]
     Dosage: UNK
     Dates: start: 20110601

REACTIONS (7)
  - PULMONARY EMBOLISM [None]
  - PAIN [None]
  - EMOTIONAL DISTRESS [None]
  - INJURY [None]
  - ANXIETY [None]
  - CARDIAC DISORDER [None]
  - GENERAL PHYSICAL HEALTH DETERIORATION [None]
